FAERS Safety Report 16368753 (Version 1)
Quarter: 2019Q2

REPORT INFORMATION
  Report Type: Spontaneous
  Country: US (occurrence: US)
  Receive Date: 20190529
  Receipt Date: 20190529
  Transmission Date: 20190711
  Serious: Yes (Hospitalization, Other)
  Sender: FDA-Public Use
  Company Number: US-GLAXOSMITHKLINE-US2019GSK094605

PATIENT
  Age: 44 Year
  Sex: Female

DRUGS (1)
  1. LAMOTRIGINE. [Suspect]
     Active Substance: LAMOTRIGINE
     Indication: PRODUCT USED FOR UNKNOWN INDICATION
     Dosage: UNK

REACTIONS (6)
  - Depressed level of consciousness [Recovering/Resolving]
  - Sinus tachycardia [Unknown]
  - Blood creatinine increased [Unknown]
  - Unresponsive to stimuli [Recovering/Resolving]
  - Blood creatine phosphokinase increased [Unknown]
  - Overdose [Unknown]
